FAERS Safety Report 13573629 (Version 1)
Quarter: 2017Q2

REPORT INFORMATION
  Report Type: Spontaneous
  Country: US (occurrence: US)
  Receive Date: 20170523
  Receipt Date: 20170523
  Transmission Date: 20170830
  Serious: Yes (Hospitalization, Other)
  Sender: FDA-Public Use
  Company Number: US-SMITH AND NEPHEW, INC-2017SMT00265

PATIENT
  Age: 52 Year
  Sex: Male
  Weight: 92.97 kg

DRUGS (5)
  1. METOPROLOL. [Concomitant]
     Active Substance: METOPROLOL
  2. NOVOLOG [Concomitant]
     Active Substance: INSULIN ASPART
  3. LEVEMIR [Concomitant]
     Active Substance: INSULIN DETEMIR
  4. UNSPECIFIED STATIN [Concomitant]
  5. REGRANEX [Suspect]
     Active Substance: BECAPLERMIN
     Indication: DIABETIC ULCER
     Dosage: UNK, 1X/DAY FOR 12 HOURS ON AND 12 HOURS OFF
     Route: 061
     Dates: start: 20170408, end: 20170427

REACTIONS (7)
  - Toe amputation [Recovered/Resolved with Sequelae]
  - Drug ineffective [Recovered/Resolved]
  - Wound complication [Recovered/Resolved]
  - Pyrexia [Unknown]
  - Wound secretion [Recovered/Resolved]
  - Wound infection [Recovered/Resolved]
  - Chills [Unknown]

NARRATIVE: CASE EVENT DATE: 201704
